FAERS Safety Report 6434356-5 (Version None)
Quarter: 2009Q4

REPORT INFORMATION
  Report Type: 
  Country: None (occurrence: None)
  Receive Date: 20091110
  Receipt Date: 20090522
  Transmission Date: 20100525
  Serious: No
  Sender: FDA-Public Use
  Company Number: US-ASTRAZENECA-2009SE09820

PATIENT

DRUGS (1)
  1. PRILOSEC OTC [Suspect]
     Dosage: UNKNOWN
     Route: 048
     Dates: start: 20060101

REACTIONS (3)
  - ABNORMAL SENSATION IN EYE [None]
  - INCORRECT DRUG ADMINISTRATION DURATION [None]
  - TOOTH DISORDER [None]
